FAERS Safety Report 6210217-1 (Version None)
Quarter: 2009Q2

REPORT INFORMATION
  Report Type: 
  Country: None (occurrence: None)
  Receive Date: 20090601
  Receipt Date: 20090522
  Transmission Date: 20091009
  Serious: Yes (Other)
  Sender: FDA-Public Use
  Company Number: US-MERCK-0801USA03086

PATIENT
  Age: 60 Year
  Sex: Female
  Weight: 83 kg

DRUGS (6)
  1. FOSAMAX [Suspect]
     Indication: OSTEOPOROSIS
     Route: 048
     Dates: start: 19961022, end: 19970101
  2. FOSAMAX [Suspect]
     Route: 048
  3. FOSAMAX [Suspect]
     Route: 048
     Dates: start: 19970101, end: 20061201
  4. ISORDIL [Concomitant]
     Indication: CARDIAC DISORDER
     Route: 065
  5. SYNTHROID [Concomitant]
     Indication: THYROID DISORDER
     Route: 065
     Dates: start: 19900101
  6. CLIMARA [Concomitant]
     Indication: POSTMENOPAUSE
     Route: 065
     Dates: start: 19880101

REACTIONS (34)
  - ADENOIDAL DISORDER [None]
  - APPENDIX DISORDER [None]
  - ARTERIOSCLEROSIS CORONARY ARTERY [None]
  - BILIARY CIRRHOSIS PRIMARY [None]
  - COLON ADENOMA [None]
  - DEPRESSION [None]
  - DERMATITIS CONTACT [None]
  - EPISTAXIS [None]
  - ESSENTIAL HYPERTENSION [None]
  - FALL [None]
  - GASTROINTESTINAL ANGIODYSPLASIA [None]
  - GASTROOESOPHAGEAL REFLUX DISEASE [None]
  - HAEMORRHOIDS [None]
  - HIATUS HERNIA [None]
  - HYPERCHOLESTEROLAEMIA [None]
  - HYPERPARATHYROIDISM [None]
  - HYPERTENSION [None]
  - HYPOTHYROIDISM [None]
  - LABYRINTHITIS [None]
  - MYOCARDIAL INFARCTION [None]
  - ORAL DISORDER [None]
  - OSTEOARTHRITIS [None]
  - OSTEOMYELITIS [None]
  - OSTEONECROSIS [None]
  - OSTEOPENIA [None]
  - OTITIS EXTERNA [None]
  - OTOSCLEROSIS [None]
  - PANCREATITIS [None]
  - PNEUMONIA STREPTOCOCCAL [None]
  - PRURITUS [None]
  - RHEUMATOID ARTHRITIS [None]
  - SKIN IRRITATION [None]
  - TONSILLAR DISORDER [None]
  - VERTIGO [None]
